FAERS Safety Report 8834446 (Version 2)
Quarter: 2013Q1

REPORT INFORMATION
  Report Type: Spontaneous
  Country: BR (occurrence: BR)
  Receive Date: 20121010
  Receipt Date: 20130117
  Transmission Date: 20140127
  Serious: Yes (Life-Threatening, Hospitalization, Other)
  Sender: FDA-Public Use
  Company Number: PHHY2012BR088564

PATIENT
  Age: 84 None
  Sex: Male

DRUGS (9)
  1. FORASEQ [Suspect]
     Indication: EMPHYSEMA
     Dosage: 3 DF, CAPSULES PER DAY
  2. FORASEQ [Suspect]
     Dosage: 4 DF, CAPSULES PER DAY
  3. CLOPIDOGREL [Concomitant]
     Indication: EMPHYSEMA
     Dosage: 2 DF, QD
     Route: 048
  4. SINVASCOR [Concomitant]
     Indication: EMPHYSEMA
     Dosage: 1 DF, QD
     Route: 048
  5. LASIX [Concomitant]
     Indication: EMPHYSEMA
     Dosage: 1 OR 3DF, QD
     Route: 048
  6. FUROSEMIDE [Concomitant]
     Indication: MICTURITION DISORDER
     Dosage: 1 DF, QD
  7. SUSTRATE [Concomitant]
     Indication: CARDIAC DISORDER
     Dosage: 2 DF, QD
     Route: 048
  8. CLOPIDOGREL HYDROCHLORIDE [Concomitant]
     Indication: BLOOD PRESSURE ABNORMAL
     Dosage: 1 DF, EVERY OTHER DAY
     Route: 048
  9. SEKI//CLOPERASTINE FENDIZOATE [Concomitant]
     Indication: SECRETION DISCHARGE
     Dosage: 5 ML, DAILY
     Route: 048

REACTIONS (13)
  - Feeling abnormal [Unknown]
  - Pulmonary oedema [Recovered/Resolved]
  - Myocardial infarction [Recovered/Resolved]
  - Respiratory disorder [Not Recovered/Not Resolved]
  - Diaphragmatic disorder [Unknown]
  - Emphysema [Not Recovered/Not Resolved]
  - Asthenia [Not Recovered/Not Resolved]
  - Wheezing [Not Recovered/Not Resolved]
  - Dyspnoea [Not Recovered/Not Resolved]
  - Chest pain [Recovered/Resolved]
  - Lip discolouration [Recovered/Resolved]
  - Gait disturbance [Recovered/Resolved]
  - Hypersensitivity [Unknown]
